FAERS Safety Report 9990363 (Version 1)
Quarter: 2014Q1

REPORT INFORMATION
  Report Type: Spontaneous
  Country: US (occurrence: None)
  Receive Date: 20140123
  Receipt Date: 20140123
  Transmission Date: 20141002
  Serious: Yes (Hospitalization)
  Sender: FDA-Public Use
  Company Number: UTC-035023

PATIENT
  Age: 58 Year
  Sex: Female
  Weight: 61.36 kg

DRUGS (4)
  1. REMODULIN ( 5 MILLIGRAM/MILLILITERS, INJECTION FOR INFUSION) (TREPROSTINIL SODIUM) [Suspect]
     Indication: PULMONARY ARTERIAL HYPERTENSION
     Dosage: 140.4 UG/KG (0.0975 UG/KG, 1 IN 1 MIN) , INTRAVENOUS DRIP  THERAPY DATES 05AUG2005 TO ONGOING
     Dates: start: 20080805
  2. ADCIRCA (TADALAFIL-) [Concomitant]
  3. TRACLEER (BOSENTAN -) [Concomitant]
  4. COUMADIN (WARFARIN SODIUM) [Concomitant]

REACTIONS (2)
  - Sepsis [None]
  - Device malfunction [None]
